FAERS Safety Report 13149830 (Version 16)
Quarter: 2018Q2

REPORT INFORMATION
  Report Type: Report from Study
  Country: US (occurrence: US)
  Receive Date: 20170125
  Receipt Date: 20180423
  Transmission Date: 20180711
  Serious: Yes (Hospitalization, Other)
  Sender: FDA-Public Use
  Company Number: US-JNJFOC-20161213423

PATIENT
  Age: 70 Year
  Sex: Male

DRUGS (7)
  1. LOSARTAN AND HYDROCHLOROTHIAZIDE [Concomitant]
     Active Substance: HYDROCHLOROTHIAZIDE\LOSARTAN POTASSIUM
     Indication: HYPERTENSION
     Dosage: 25 MG, QD, SOMETIMES TAKES AT NIGHT
     Route: 048
  2. TAMSULOSIN [Concomitant]
     Active Substance: TAMSULOSIN
  3. EFFIENT [Concomitant]
     Active Substance: PRASUGREL HYDROCHLORIDE
     Dates: start: 20180201
  4. LEVOTHYROXINE. [Concomitant]
     Active Substance: LEVOTHYROXINE
  5. IMBRUVICA [Suspect]
     Active Substance: IBRUTINIB
     Indication: CHRONIC LYMPHOCYTIC LEUKAEMIA
     Route: 048
     Dates: start: 20160926
  6. METOPROLOL. [Concomitant]
     Active Substance: METOPROLOL
     Indication: HYPERTENSION
     Route: 048
  7. HYDROCODONE [Concomitant]
     Active Substance: HYDROCODONE
     Indication: BACK PAIN
     Route: 065

REACTIONS (31)
  - Depressed mood [Unknown]
  - White blood cell count abnormal [Recovering/Resolving]
  - Fatigue [Unknown]
  - Pain in extremity [Unknown]
  - Asthenia [Unknown]
  - Drug dose omission [Unknown]
  - Eye disorder [Unknown]
  - Rash papular [Recovered/Resolved]
  - Influenza [Not Recovered/Not Resolved]
  - Ear infection [Recovering/Resolving]
  - White blood cell count increased [Unknown]
  - Ear haemorrhage [Recovering/Resolving]
  - Renal failure [Unknown]
  - Prostatomegaly [Unknown]
  - Memory impairment [Unknown]
  - Haemorrhage [Recovered/Resolved]
  - Myocardial infarction [Not Recovered/Not Resolved]
  - Hypertension [Not Recovered/Not Resolved]
  - Epistaxis [Not Recovered/Not Resolved]
  - Scratch [Recovered/Resolved]
  - Somnolence [Unknown]
  - Pain [Unknown]
  - Coronary artery occlusion [Recovering/Resolving]
  - Gout [Recovering/Resolving]
  - Diabetes mellitus [Not Recovered/Not Resolved]
  - Overweight [Unknown]
  - Angina pectoris [Recovering/Resolving]
  - Rash [Unknown]
  - Constipation [Recovering/Resolving]
  - Malaise [Not Recovered/Not Resolved]
  - Feeling abnormal [Unknown]

NARRATIVE: CASE EVENT DATE: 2016
